FAERS Safety Report 10589504 (Version 1)
Quarter: 2014Q4

REPORT INFORMATION
  Report Type: Spontaneous
  Country: BR (occurrence: None)
  Receive Date: 20141114
  Receipt Date: 20141114
  Transmission Date: 20150529
  Serious: Yes (Hospitalization)
  Sender: FDA-Public Use
  Company Number: IMP_08118_2014

PATIENT
  Age: 57 Year
  Sex: Male

DRUGS (4)
  1. AMANTADINE (UNKNOWN) [Concomitant]
  2. LEVODOPA-CARBIDOPA [Suspect]
     Active Substance: CARBIDOPA\LEVODOPA
     Indication: PARKINSON^S DISEASE
     Dosage: UP TO 12 TABLETS OF 250/25 MG PER DAY
  3. CLONAZEPAM (UNKNOWN) [Concomitant]
     Active Substance: CLONAZEPAM
  4. AMITRIPTYLINE (UNKNOWN) [Concomitant]
     Active Substance: AMITRIPTYLINE

REACTIONS (21)
  - Dysarthria [None]
  - Hyperhidrosis [None]
  - Muscle rigidity [None]
  - Gait disturbance [None]
  - Aggression [None]
  - Self-medication [None]
  - Anxiety [None]
  - Restlessness [None]
  - Abnormal behaviour [None]
  - Dyskinesia [None]
  - Impaired driving ability [None]
  - Tremor [None]
  - Dopamine dysregulation syndrome [None]
  - Drug dependence [None]
  - Agitation [None]
  - Hypersexuality [None]
  - Drug effect decreased [None]
  - Dysphonia [None]
  - On and off phenomenon [None]
  - Bradykinesia [None]
  - Depression [None]
